FAERS Safety Report 9305879 (Version 1)
Quarter: 2013Q1

REPORT INFORMATION
  Report Type: Spontaneous
  Country: AU (occurrence: None)
  Receive Date: 20130301
  Receipt Date: 20130301
  Transmission Date: 20140127
  Serious: Yes (Life-Threatening, Hospitalization)
  Sender: FDA-Public Use
  Company Number: 2012AU000991

PATIENT
  Age: 61 Year
  Sex: Male
  Weight: 116 kg

DRUGS (11)
  1. PONATINIB [Suspect]
     Indication: CHRONIC MYELOID LEUKAEMIA
     Route: 048
     Dates: start: 20110328, end: 20121230
  2. CANDESARTAN CILEXETIL [Concomitant]
  3. COLOXYL WITH SENNA [Concomitant]
  4. DIAFORMIN [Concomitant]
  5. DIAMICRON [Concomitant]
  6. MODURETIC [Concomitant]
  7. INSULIN GLARGINE [Concomitant]
  8. MOVICOL [Concomitant]
  9. ASPIRIN [Concomitant]
  10. ZANIDIP [Concomitant]
  11. VOLTAREN [Concomitant]

REACTIONS (4)
  - Acute coronary syndrome [None]
  - Atrial fibrillation [None]
  - Blood creatinine increased [None]
  - Post procedural complication [None]
